FAERS Safety Report 9071020 (Version 1)
Quarter: 2013Q1

REPORT INFORMATION
  Report Type: Report from Study
  Country: US (occurrence: US)
  Receive Date: 20130129
  Receipt Date: 20130129
  Transmission Date: 20140127
  Serious: No
  Sender: FDA-Public Use
  Company Number: US-ABBOTT-12P-163-0934212-00

PATIENT
  Age: 68 None
  Sex: Female

DRUGS (8)
  1. HUMIRA 40 MG/0.8 ML PEN [Suspect]
     Indication: PSORIATIC ARTHROPATHY
     Dates: start: 20120423
  2. METHOTREXATE [Concomitant]
     Indication: PSORIATIC ARTHROPATHY
     Dosage: 8 TABLETS EVERY MONDAY
  3. VICTOZA [Concomitant]
     Indication: TYPE 2 DIABETES MELLITUS
     Dosage: 1.8MG INJECTIONS EVERY DAY
  4. LIPITOR [Concomitant]
     Indication: HYPERTENSION
     Dosage: 20MG EVERY DAY
  5. METFORMIN EX [Concomitant]
     Indication: TYPE 2 DIABETES MELLITUS
     Dosage: WITH DINNER
  6. METOPROLOL [Concomitant]
     Indication: HYPERTENSION
     Dosage: AT DINNER
  7. FOLIC ACID [Concomitant]
     Indication: VITAMIN SUPPLEMENTATION
     Dosage: WITH DINNER
  8. PLAVIX [Concomitant]
     Indication: ISCHAEMIC HEART DISEASE PROPHYLAXIS

REACTIONS (4)
  - Injection site bruising [Recovered/Resolved]
  - Incorrect route of drug administration [Recovered/Resolved]
  - Injection site pain [Recovered/Resolved]
  - Injection site haemorrhage [Recovered/Resolved]
